FAERS Safety Report 4846995-3 (Version None)
Quarter: 2005Q4

REPORT INFORMATION
  Report Type: 
  Country: None (occurrence: None)
  Receive Date: 20051201
  Receipt Date: 20051123
  Transmission Date: 20060501
  Serious: Yes (Other)
  Sender: FDA-Public Use
  Company Number: 2005159650

PATIENT
  Age: 15 Year
  Sex: Male
  Weight: 64.4108 kg

DRUGS (2)
  1. SUDAFED PE (PHENYLEPHRINE) [Suspect]
     Indication: HEADACHE
     Dosage: 1 TABLET TWICE DAILY,ORAL
     Route: 048
     Dates: start: 20051120, end: 20051121
  2. PARACETAMOL (PARACETAMOL) [Concomitant]

REACTIONS (3)
  - BLOOD PRESSURE INCREASED [None]
  - PYELONEPHRITIS [None]
  - STREPTOCOCCAL INFECTION [None]
